FAERS Safety Report 16308971 (Version 1)
Quarter: 2019Q2

REPORT INFORMATION
  Report Type: Spontaneous
  Country: US (occurrence: US)
  Receive Date: 20190513
  Receipt Date: 20190513
  Transmission Date: 20190711
  Serious: Yes (Other)
  Sender: FDA-Public Use
  Company Number: None

PATIENT
  Age: 66 Year
  Sex: Female
  Weight: 90 kg

DRUGS (7)
  1. PEPCID AC PO [Concomitant]
  2. DULOXITINE 60 MG PO BID [Suspect]
     Active Substance: DULOXETINE
     Indication: DEPRESSION
     Dosage: ?          QUANTITY:90 CAPSULE(S);?
     Route: 048
     Dates: start: 20190402, end: 20190502
  3. DULOXITINE 60 MG PO BID [Concomitant]
     Active Substance: DULOXETINE
  4. CELEBREX 20 MG PO BID [Concomitant]
  5. DULOXITINE 60 MG PO BID [Suspect]
     Active Substance: DULOXETINE
     Indication: PAIN MANAGEMENT
     Dosage: ?          QUANTITY:90 CAPSULE(S);?
     Route: 048
     Dates: start: 20190402, end: 20190502
  6. TYLENOL 2 TABS TID [Concomitant]
  7. NEXIUM 40 MG PO QD [Concomitant]

REACTIONS (8)
  - Irritability [None]
  - Pain [None]
  - Product prescribing error [None]
  - Incorrect dose administered [None]
  - Inability to afford medication [None]
  - Drug withdrawal syndrome [None]
  - Crying [None]
  - Product dispensing error [None]

NARRATIVE: CASE EVENT DATE: 20190513
